FAERS Safety Report 12173576 (Version 1)
Quarter: 2016Q1

REPORT INFORMATION
  Report Type: Spontaneous
  Country: US (occurrence: None)
  Receive Date: 20160311
  Receipt Date: 20160311
  Transmission Date: 20160526
  Serious: Yes (Other)
  Sender: FDA-Public Use
  Company Number: None

PATIENT
  Age: 29 Year
  Sex: Female
  Weight: 0 kg

DRUGS (1)
  1. HUMIRA [Suspect]
     Active Substance: ADALIMUMAB
     Indication: RHEUMATOID ARTHRITIS
     Dosage: SUBCUTANEOUS 40MG INJECTABLE QOW
     Route: 058
     Dates: start: 201202, end: 201601

REACTIONS (3)
  - Wrong technique in product usage process [None]
  - Injection site pain [None]
  - Drug dose omission [None]

NARRATIVE: CASE EVENT DATE: 20160101
